FAERS Safety Report 5267062-3 (Version None)
Quarter: 2007Q1

REPORT INFORMATION
  Report Type: 
  Country: None (occurrence: None)
  Receive Date: 20061213
  Receipt Date: 20030115
  Transmission Date: 20070707
  Serious: Yes (Life-Threatening)
  Sender: FDA-Public Use
  Company Number: 2003UW00671

PATIENT
  Age: 43 Year
  Sex: Female

DRUGS (1)
  1. TAMOXIFEN CITRATE [Suspect]
     Dosage: 20 MG PO
     Route: 048

REACTIONS (1)
  - CEREBRAL VENOUS THROMBOSIS [None]
